FAERS Safety Report 25465351 (Version 3)
Quarter: 2025Q3

REPORT INFORMATION
  Report Type: Spontaneous
  Country: JP (occurrence: JP)
  Receive Date: 20250622
  Receipt Date: 20250721
  Transmission Date: 20251020
  Serious: Yes (Hospitalization, Other)
  Sender: NOVARTIS
  Company Number: JP-002147023-NVSJ2025JP006604

PATIENT
  Age: 9 Year
  Sex: Female

DRUGS (9)
  1. ILARIS [Suspect]
     Active Substance: CANAKINUMAB
     Indication: Still^s disease
     Route: 058
     Dates: start: 202412
  2. ILARIS [Suspect]
     Active Substance: CANAKINUMAB
     Route: 058
  3. ILARIS [Suspect]
     Active Substance: CANAKINUMAB
     Route: 058
     Dates: start: 20250602
  4. ILARIS [Suspect]
     Active Substance: CANAKINUMAB
     Route: 058
     Dates: start: 20250630
  5. SULFAMETHOXAZOLE\TRIMETHOPRIM [Concomitant]
     Active Substance: SULFAMETHOXAZOLE\TRIMETHOPRIM
     Indication: Product used for unknown indication
     Route: 065
  6. TACROLIMUS [Concomitant]
     Active Substance: TACROLIMUS
     Indication: Product used for unknown indication
     Route: 065
  7. ALFACALCIDOL [Concomitant]
     Active Substance: ALFACALCIDOL
     Indication: Product used for unknown indication
     Route: 065
  8. PREDONINE [Concomitant]
     Active Substance: PREDNISOLONE
     Indication: Product used for unknown indication
     Route: 065
  9. MICONAZOLE [Concomitant]
     Active Substance: MICONAZOLE
     Indication: Product used for unknown indication
     Route: 065

REACTIONS (3)
  - Haemophagocytic lymphohistiocytosis [Recovered/Resolved]
  - Oral candidiasis [Unknown]
  - Hepatomegaly [Unknown]

NARRATIVE: CASE EVENT DATE: 20250512
